FAERS Safety Report 10617194 (Version 5)
Quarter: 2015Q3

REPORT INFORMATION
  Report Type: Spontaneous
  Country: US (occurrence: US)
  Receive Date: 20141201
  Receipt Date: 20150818
  Transmission Date: 20151125
  Serious: Yes (Hospitalization)
  Sender: FDA-Public Use
  Company Number: US-BAYER-2014-174629

PATIENT
  Age: 26 Year
  Sex: Female
  Weight: 113.38 kg

DRUGS (3)
  1. MIRENA [Suspect]
     Active Substance: LEVONORGESTREL
     Indication: CONTRACEPTION
     Dosage: 20 MCG/24HR, CONT
     Route: 015
     Dates: start: 20090320, end: 20100205
  2. VENTOLIN [Concomitant]
     Active Substance: ALBUTEROL SULFATE
     Dosage: UNK
     Dates: start: 2003
  3. LEVLEN [Concomitant]
     Active Substance: ETHINYL ESTRADIOL\LEVONORGESTREL
     Dosage: UNK
     Dates: start: 2003

REACTIONS (10)
  - Ectopic pregnancy with contraceptive device [None]
  - Emotional distress [None]
  - Device issue [None]
  - Device dislocation [None]
  - Ruptured ectopic pregnancy [None]
  - Pelvic pain [None]
  - Pain [None]
  - Uterine pain [None]
  - Injury [None]
  - Drug ineffective [None]

NARRATIVE: CASE EVENT DATE: 200903
